FAERS Safety Report 5668066-9 (Version None)
Quarter: 2008Q1

REPORT INFORMATION
  Report Type: 
  Country: None (occurrence: None)
  Receive Date: 20080313
  Receipt Date: 20080306
  Transmission Date: 20080703
  Serious: No
  Sender: FDA-Public Use
  Company Number: A0685162A

PATIENT
  Age: 77 Year
  Sex: Male
  Weight: 116.5744 kg

DRUGS (3)
  1. GLYCERIN SPRAY (GLYCERIN) [Suspect]
     Indication: DRY MOUTH
     Dosage: AS REQUIRED/ORAL
     Route: 048
     Dates: start: 20070910, end: 20070930
  2. CARVEDILOL [Concomitant]
  3. METOLAZONE [Concomitant]

REACTIONS (9)
  - CARDIAC FAILURE CONGESTIVE [None]
  - CONDITION AGGRAVATED [None]
  - COUGH [None]
  - DYSPNOEA [None]
  - MUSCULOSKELETAL CHEST PAIN [None]
  - PHARMACEUTICAL PRODUCT COMPLAINT [None]
  - RETCHING [None]
  - SENSATION OF FOREIGN BODY [None]
  - THROAT IRRITATION [None]
